FAERS Safety Report 20503411 (Version 1)
Quarter: 2022Q1

REPORT INFORMATION
  Report Type: Spontaneous
  Country: US (occurrence: US)
  Receive Date: 20220222
  Receipt Date: 20220222
  Transmission Date: 20220423
  Serious: Yes (Other)
  Sender: FDA-Public Use
  Company Number: US-AMNEAL PHARMACEUTICALS-2022-AMRX-00354

PATIENT
  Age: 13 Month
  Sex: Female

DRUGS (6)
  1. VIGABATRIN [Suspect]
     Active Substance: VIGABATRIN
     Indication: Infantile spasms
     Dosage: 500 MILLIGRAM, QD
     Route: 048
     Dates: start: 20210707, end: 2021
  2. VIGABATRIN [Suspect]
     Active Substance: VIGABATRIN
     Dosage: 9 MILLILITER, BID, FOR 1 WEEK
     Route: 048
  3. VIGABATRIN [Suspect]
     Active Substance: VIGABATRIN
     Dosage: 8 MILLILITER, BID FOR 1 WEEK
     Route: 048
  4. VIGABATRIN [Suspect]
     Active Substance: VIGABATRIN
     Dosage: 7.5 MILLILITER, BID, FOR 1 WEEK
     Route: 048
  5. VIGABATRIN [Suspect]
     Active Substance: VIGABATRIN
     Dosage: 5 MILLILITER, BID, FOR 1 WEEK
     Route: 048
  6. VIGABATRIN [Suspect]
     Active Substance: VIGABATRIN
     Dosage: 2.5 MILLILITER, BID, FOR 1 WEEK
     Route: 048

REACTIONS (2)
  - Maculopathy [Unknown]
  - Macular pigmentation [Unknown]

NARRATIVE: CASE EVENT DATE: 20211215
